FAERS Safety Report 11593157 (Version 1)
Quarter: 2015Q4

REPORT INFORMATION
  Report Type: Spontaneous
  Country: US (occurrence: US)
  Receive Date: 20151005
  Receipt Date: 20151005
  Transmission Date: 20160304
  Serious: No
  Sender: FDA-Public Use
  Company Number: US-NOVELLABS-2015-US-000034

PATIENT
  Age: 34 Year
  Sex: Female
  Weight: 99.79 kg

DRUGS (1)
  1. LEVONORGESTREL (MY WAY) [Suspect]
     Active Substance: LEVONORGESTREL
     Dosage: 1 TABLET, ONCE A DAY,
     Route: 048
     Dates: start: 20150717, end: 20150717

REACTIONS (4)
  - Abdominal pain [Unknown]
  - Headache [Recovered/Resolved]
  - Nausea [Recovered/Resolved]
  - Polymenorrhoea [Unknown]

NARRATIVE: CASE EVENT DATE: 20150722
